FAERS Safety Report 18789403 (Version 1)
Quarter: 2021Q1

REPORT INFORMATION
  Report Type: Spontaneous
  Country: US (occurrence: US)
  Receive Date: 20210126
  Receipt Date: 20210126
  Transmission Date: 20210419
  Serious: Yes (Life-Threatening, Hospitalization, Disabling)
  Sender: FDA-Public Use
  Company Number: None

PATIENT
  Age: 31 Year
  Sex: Male
  Weight: 85.95 kg

DRUGS (2)
  1. CIPROFLOXACIN. [Suspect]
     Active Substance: CIPROFLOXACIN
     Indication: URINARY TRACT INFECTION
     Dosage: ?          QUANTITY:56 TABLET(S);?
     Route: 048
     Dates: start: 20200914, end: 20200919
  2. BPC + EPICATECHIN [Concomitant]

REACTIONS (6)
  - Insomnia [None]
  - Vertigo [None]
  - Arthralgia [None]
  - Pain [None]
  - Muscle spasms [None]
  - Palpitations [None]

NARRATIVE: CASE EVENT DATE: 20200916
